FAERS Safety Report 4648777-4 (Version None)
Quarter: 2005Q2

REPORT INFORMATION
  Report Type: 
  Country: None (occurrence: None)
  Receive Date: 20050427
  Receipt Date: 20050413
  Transmission Date: 20051028
  Serious: Yes (Hospitalization, Other)
  Sender: FDA-Public Use
  Company Number: USA050495542

PATIENT
  Age: 61 Year
  Sex: Male

DRUGS (3)
  1. HUMULIN N [Suspect]
     Indication: BLOOD GLUCOSE
     Dosage: 44 U DAY
  2. HUMULIN R [Suspect]
     Indication: BLOOD GLUCOSE
     Dosage: 28 U DAY
  3. VITAMINS NOS [Concomitant]

REACTIONS (5)
  - CEREBROVASCULAR ACCIDENT [None]
  - DIABETES MELLITUS INADEQUATE CONTROL [None]
  - MYOCARDIAL INFARCTION [None]
  - PHARMACEUTICAL PRODUCT COMPLAINT [None]
  - POOR QUALITY DRUG ADMINISTERED [None]
